FAERS Safety Report 6747664-5 (Version None)
Quarter: 2010Q2

REPORT INFORMATION
  Report Type: 
  Country: None (occurrence: None)
  Receive Date: 20100528
  Receipt Date: 20100519
  Transmission Date: 20101027
  Serious: Yes (Other)
  Sender: FDA-Public Use
  Company Number: FR-JNJCH-2010012827

PATIENT
  Age: 55 Year

DRUGS (1)
  1. CETIRIZINE HYDROCHLORIDE [Suspect]
     Indication: DRUG USE FOR UNKNOWN INDICATION
     Dosage: TEXT:TAKING 3 TIMES THE PRESCRIBED DOSE
     Route: 065

REACTIONS (1)
  - VENTRICULAR ARRHYTHMIA [None]
